FAERS Safety Report 21040299 (Version 2)
Quarter: 2022Q3

REPORT INFORMATION
  Report Type: Report from Study
  Country: DE (occurrence: DE)
  Receive Date: 20220704
  Receipt Date: 20220711
  Transmission Date: 20221027
  Serious: Yes (Life-Threatening, Other)
  Sender: FDA-Public Use
  Company Number: DE-BRISTOL-MYERS SQUIBB COMPANY-2022-067183

PATIENT
  Age: 74 Year
  Sex: Male
  Weight: 106 kg

DRUGS (12)
  1. CISPLATIN [Suspect]
     Active Substance: CISPLATIN
     Indication: Non-small cell lung cancer
     Dosage: MOST RECENT DOSE WAS ADMINISTERED ON 08-JUN-2022
     Route: 065
     Dates: start: 20220516
  2. ETOPOSIDE [Suspect]
     Active Substance: ETOPOSIDE
     Indication: Non-small cell lung cancer
     Dosage: MOST RECENT DOSE WAS ADMINISTERED ON 10-JUN-2022
     Route: 065
     Dates: start: 20220516
  3. APIXABAN [Concomitant]
     Active Substance: APIXABAN
     Indication: Product used for unknown indication
     Dosage: DAILY; PER DAY
     Route: 048
     Dates: start: 2020
  4. ATORVASTATIN [Concomitant]
     Active Substance: ATORVASTATIN
     Indication: Product used for unknown indication
     Dosage: DAILY; PER DAY
     Route: 048
     Dates: start: 2020
  5. METFORMIN [Concomitant]
     Active Substance: METFORMIN HYDROCHLORIDE
     Indication: Product used for unknown indication
     Dosage: DAILY; PER DAY
     Route: 048
     Dates: start: 2020
  6. TAMSOLUSIN [Concomitant]
     Indication: Product used for unknown indication
     Dosage: DAILY; PER DAY
     Route: 048
     Dates: start: 2020
  7. OLODATEROL HYDROCHLORIDE\TIOTROPIUM BROMIDE MONOHYDRATE [Concomitant]
     Active Substance: OLODATEROL HYDROCHLORIDE\TIOTROPIUM BROMIDE MONOHYDRATE
     Indication: Product used for unknown indication
     Dosage: DAILY; PER DAY
     Route: 055
     Dates: start: 2005
  8. STARBUMOL [SALBUTAMOL SULFATE] [Concomitant]
     Indication: Product used for unknown indication
     Dosage: AS NEEDED
     Route: 055
     Dates: start: 2005
  9. PARACODIN [Concomitant]
     Indication: Product used for unknown indication
     Dosage: AS NEEDED
     Route: 048
     Dates: start: 20220422
  10. AKYNZEO [Concomitant]
     Indication: Product used for unknown indication
     Route: 048
     Dates: start: 20220608, end: 20220608
  11. OLANZAPINE [Concomitant]
     Active Substance: OLANZAPINE
     Indication: Product used for unknown indication
     Route: 048
     Dates: start: 20220608, end: 20220611
  12. MCP [Concomitant]
     Active Substance: METOCLOPRAMIDE HYDROCHLORIDE
     Indication: Product used for unknown indication
     Route: 048
     Dates: start: 20220608, end: 20220610

REACTIONS (1)
  - Neutropenia [Recovered/Resolved]

NARRATIVE: CASE EVENT DATE: 20220622
